FAERS Safety Report 4854221-4 (Version None)
Quarter: 2005Q4

REPORT INFORMATION
  Report Type: 
  Country: None (occurrence: None)
  Receive Date: 20051213
  Receipt Date: 20051205
  Transmission Date: 20060501
  Serious: Yes (Hospitalization)
  Sender: FDA-Public Use
  Company Number: 200514228GDS

PATIENT
  Age: 50 Year
  Sex: Male

DRUGS (11)
  1. DACARBAZINE [Suspect]
  2. DOXORUBICIN [Suspect]
  3. BLEOMYCIN [Concomitant]
  4. VINBLASTINE [Suspect]
  5. CASPOFUNGIN [Concomitant]
  6. STEROIDS [Concomitant]
  7. PENTOXIFYLLINE [Concomitant]
  8. FLUCONAZOLE [Concomitant]
  9. TENOFOVIR [Concomitant]
  10. LAMIVUDINE [Concomitant]
  11. RITONAVIR-BOOSTED ATAZANAVIR [Concomitant]

REACTIONS (11)
  - ATELECTASIS [None]
  - CRYPTOCOCCOSIS [None]
  - DRUG TOXICITY [None]
  - FATIGUE [None]
  - FEBRILE NEUTROPENIA [None]
  - GENERAL PHYSICAL HEALTH DETERIORATION [None]
  - LUNG INFILTRATION [None]
  - PNEUMOMEDIASTINUM [None]
  - PNEUMOTHORAX [None]
  - PULMONARY TOXICITY [None]
  - TRANSAMINASES INCREASED [None]
